FAERS Safety Report 20757456 (Version 3)
Quarter: 2022Q2

REPORT INFORMATION
  Report Type: Report from Study
  Country: DE (occurrence: DE)
  Receive Date: 20220427
  Receipt Date: 20220511
  Transmission Date: 20220721
  Serious: Yes (Hospitalization, Other)
  Sender: FDA-Public Use
  Company Number: DE-BAXTER-2014BAX036791

PATIENT
  Age: 74 Year
  Sex: Male
  Weight: 58 kg

DRUGS (28)
  1. PIOGLITAZONE [Suspect]
     Active Substance: PIOGLITAZONE
     Indication: Metastatic malignant melanoma
     Dosage: 30 MILLIGRAM
     Route: 048
     Dates: start: 20130704, end: 20140113
  2. PIOGLITAZONE [Suspect]
     Active Substance: PIOGLITAZONE
     Dosage: 45 MILLIGRAM
     Route: 048
     Dates: start: 20150610
  3. PIOGLITAZONE [Suspect]
     Active Substance: PIOGLITAZONE
     Dosage: 45 MILLIGRAM
     Route: 048
     Dates: start: 20150313
  4. PIOGLITAZONE [Suspect]
     Active Substance: PIOGLITAZONE
     Dosage: 45 MILLIGRAM
     Route: 048
     Dates: start: 20140909
  5. TEMSIROLIMUS [Suspect]
     Active Substance: TEMSIROLIMUS
     Indication: Metastatic malignant melanoma
     Dosage: 15 MILLIGRAM
     Route: 042
     Dates: start: 20130704, end: 20140626
  6. TEMSIROLIMUS [Suspect]
     Active Substance: TEMSIROLIMUS
     Dosage: 25 MILLIGRAM
     Route: 042
     Dates: start: 20140909
  7. TEMSIROLIMUS [Suspect]
     Active Substance: TEMSIROLIMUS
     Dosage: 25 MILLIGRAM
     Route: 042
     Dates: start: 20150310, end: 20150317
  8. TEMSIROLIMUS [Suspect]
     Active Substance: TEMSIROLIMUS
     Dosage: 25 MILLIGRAM
     Route: 042
     Dates: start: 20150505
  9. TEMSIROLIMUS [Suspect]
     Active Substance: TEMSIROLIMUS
     Dosage: 25 MILLIGRAM
     Route: 042
     Dates: start: 20150602, end: 20150609
  10. TEMSIROLIMUS [Suspect]
     Active Substance: TEMSIROLIMUS
     Dosage: 15 MILLIGRAM
     Route: 042
     Dates: start: 20150623
  11. TROFOSFAMIDE [Suspect]
     Active Substance: TROFOSFAMIDE
     Indication: Metastatic malignant melanoma
     Dosage: 100 MILLIGRAM
     Route: 048
     Dates: start: 20130704, end: 20140630
  12. TROFOSFAMIDE [Suspect]
     Active Substance: TROFOSFAMIDE
     Dosage: 150 MILLIGRAM
     Route: 048
     Dates: start: 20150610
  13. TROFOSFAMIDE [Suspect]
     Active Substance: TROFOSFAMIDE
     Dosage: 150 MILLIGRAM
     Route: 048
     Dates: start: 20140909
  14. TROFOSFAMIDE [Suspect]
     Active Substance: TROFOSFAMIDE
     Dosage: 150 MILLIGRAM
     Route: 048
     Dates: start: 20150313
  15. ETORICOXIB [Suspect]
     Active Substance: ETORICOXIB
     Indication: Metastatic malignant melanoma
     Dosage: 30 MILLIGRAM
     Route: 048
     Dates: start: 20130704, end: 20131115
  16. ETORICOXIB [Suspect]
     Active Substance: ETORICOXIB
     Dosage: 30 MILLIGRAM
     Route: 048
     Dates: start: 20150610
  17. ETORICOXIB [Suspect]
     Active Substance: ETORICOXIB
     Dosage: 30 MILLIGRAM
     Route: 048
     Dates: start: 20150313
  18. ETORICOXIB [Suspect]
     Active Substance: ETORICOXIB
     Dosage: 30 MILLIGRAM
     Route: 048
     Dates: start: 20140909
  19. GLIMEPIRIDE [Concomitant]
     Active Substance: GLIMEPIRIDE
     Indication: Type 2 diabetes mellitus
     Dosage: 4 MILLIGRAM, QD
     Route: 048
  20. BISOPROLOL [Concomitant]
     Active Substance: BISOPROLOL
     Indication: Hypertonia
     Dosage: 5 MILLIGRAM, QD
     Route: 048
  21. RAMIPRIL [Concomitant]
     Active Substance: RAMIPRIL
     Indication: Hypertonia
     Dosage: 10 MILLIGRAM, QD
     Route: 048
  22. METFORMIN [Concomitant]
     Active Substance: METFORMIN HYDROCHLORIDE
     Indication: Type 2 diabetes mellitus
     Dosage: 2000 MILLIGRAM, QD
     Route: 048
  23. CIPROFLOXACIN [Concomitant]
     Active Substance: CIPROFLOXACIN
     Indication: Prophylaxis
     Dosage: 1000 MILLIGRAM (1-0-1)
     Route: 048
     Dates: start: 20140930
  24. SPIRONOLACTONE [Concomitant]
     Active Substance: SPIRONOLACTONE
     Indication: Oedema
     Dosage: 25 MILLIGRAM  QD 0-1-0
     Route: 048
     Dates: start: 20140909
  25. TORSEMIDE [Concomitant]
     Active Substance: TORSEMIDE
     Indication: Oedema
     Dosage: 30 MILLIGRAM (1-1-(1/2))
     Route: 048
     Dates: start: 20140909
  26. TORSEMIDE [Concomitant]
     Active Substance: TORSEMIDE
     Dosage: 10 MILLIGRAM (1-0-0  )
     Route: 048
     Dates: start: 20141014
  27. PANTOZOL [Concomitant]
     Active Substance: PANTOPRAZOLE SODIUM
     Indication: Prophylaxis
     Dosage: 40 MILLIGRAM
     Route: 048
     Dates: start: 20140909
  28. HYDROCHLOROTHIAZIDE [Concomitant]
     Active Substance: HYDROCHLOROTHIAZIDE
     Indication: Hypertension
     Dosage: 25 MILLIGRAM, QD (1-0-0)
     Route: 048

REACTIONS (8)
  - Pneumonia [Recovered/Resolved]
  - Pleural effusion [Recovered/Resolved]
  - Thoracic vertebral fracture [Recovered/Resolved]
  - Perirectal abscess [Recovered/Resolved]
  - Scapula fracture [Recovered/Resolved]
  - Pneumothorax traumatic [Recovered/Resolved]
  - Lumbar vertebral fracture [Recovered/Resolved]
  - Rib fracture [Recovered/Resolved]

NARRATIVE: CASE EVENT DATE: 20140630
